FAERS Safety Report 14593071 (Version 1)
Quarter: 2018Q1

REPORT INFORMATION
  Report Type: Spontaneous
  Country: US (occurrence: US)
  Receive Date: 20180302
  Receipt Date: 20180302
  Transmission Date: 20180509
  Serious: Yes (Life-Threatening, Hospitalization, Other)
  Sender: FDA-Public Use
  Company Number: None

PATIENT
  Age: 78 Year
  Sex: Female
  Weight: 51.71 kg

DRUGS (9)
  1. PROBIOTIC [Concomitant]
     Active Substance: PROBIOTICS NOS
  2. PHENTOIN [Concomitant]
  3. KEPPRA [Suspect]
     Active Substance: LEVETIRACETAM
     Indication: CONVULSION PROPHYLAXIS
     Dates: start: 201509
  4. THYROID [Concomitant]
     Active Substance: LEVOTHYROXINE\LIOTHYRONINE
  5. PRENATAL VITAMIN [Concomitant]
     Active Substance: VITAMINS
  6. METROPOLOL [Concomitant]
     Active Substance: METOPROLOL
  7. ELIQUIS [Concomitant]
     Active Substance: APIXABAN
  8. ROPINIROLE. [Concomitant]
     Active Substance: ROPINIROLE
  9. PRISTIQ EXTENDED-RELEASE [Concomitant]
     Active Substance: DESVENLAFAXINE SUCCINATE

REACTIONS (7)
  - Complication associated with device [None]
  - Head injury [None]
  - Weight decreased [None]
  - Wound [None]
  - Feeling abnormal [None]
  - Gallbladder disorder [None]
  - Hallucination [None]
